FAERS Safety Report 8763371 (Version 5)
Quarter: 2013Q4

REPORT INFORMATION
  Report Type: Spontaneous
  Country: US (occurrence: US)
  Receive Date: 20120831
  Receipt Date: 20131008
  Transmission Date: 20140711
  Serious: Yes (Hospitalization, Disabling, Other)
  Sender: FDA-Public Use
  Company Number: US-009507513-1208USA009021

PATIENT
  Sex: Female
  Weight: 68.27 kg

DRUGS (4)
  1. FOSAMAX [Suspect]
     Indication: OSTEOPOROSIS
     Dosage: 70 MG, QW
     Route: 048
     Dates: start: 200110, end: 200912
  2. FOSAMAX [Suspect]
     Dosage: 10 MG, UNK
     Route: 048
     Dates: start: 199707, end: 200110
  3. VITAMINS (UNSPECIFIED) [Concomitant]
     Indication: PRODUCT USED FOR UNKNOWN INDICATION
     Dosage: ONE, QD
     Dates: start: 1990
  4. CALCIUM (UNSPECIFIED) [Concomitant]
     Indication: PRODUCT USED FOR UNKNOWN INDICATION
     Dosage: 1200 MG, UNK
     Dates: start: 1990

REACTIONS (68)
  - Femur fracture [Recovered/Resolved]
  - Femur fracture [Not Recovered/Not Resolved]
  - Removal of internal fixation [Not Recovered/Not Resolved]
  - Periprosthetic fracture [Recovering/Resolving]
  - Open reduction of fracture [Recovering/Resolving]
  - Internal fixation of fracture [Unknown]
  - Femur fracture [Unknown]
  - Internal fixation of fracture [Unknown]
  - Femur fracture [Unknown]
  - Intramedullary rod insertion [Unknown]
  - Femur fracture [Unknown]
  - Removal of internal fixation [Unknown]
  - Hip arthroplasty [Unknown]
  - Spinal laminectomy [Unknown]
  - Hip arthroplasty [Unknown]
  - Hip arthroplasty [Unknown]
  - Knee arthroplasty [Unknown]
  - Femur fracture [Recovering/Resolving]
  - Open reduction of fracture [Recovering/Resolving]
  - Bone graft [Recovering/Resolving]
  - Spinal laminectomy [Unknown]
  - Fall [Unknown]
  - Spinal fracture [Unknown]
  - Pubis fracture [Unknown]
  - Device related infection [Unknown]
  - Rib fracture [Unknown]
  - Device dislocation [Unknown]
  - Fall [Unknown]
  - Anaemia [Unknown]
  - Fall [Unknown]
  - Transfusion [Unknown]
  - Toothache [Unknown]
  - Vitamin D deficiency [Unknown]
  - Lobar pneumonia [Unknown]
  - Tooth extraction [Unknown]
  - Ankle fracture [Unknown]
  - Accident [Unknown]
  - Fracture nonunion [Unknown]
  - Impaired healing [Unknown]
  - Fracture nonunion [Unknown]
  - Localised infection [Unknown]
  - Device breakage [Unknown]
  - Fibula fracture [Unknown]
  - Parkinson^s disease [Unknown]
  - Hypertension [Unknown]
  - Osteopenia [Unknown]
  - Fall [Unknown]
  - Osteoarthritis [Unknown]
  - Osteoporosis [Not Recovered/Not Resolved]
  - Left ventricular hypertrophy [Unknown]
  - Diastolic dysfunction [Unknown]
  - Pelvic deformity [Not Recovered/Not Resolved]
  - Osteoarthritis [Unknown]
  - Spinal osteoarthritis [Unknown]
  - Pubis fracture [Unknown]
  - Fractured sacrum [Unknown]
  - Insomnia [Unknown]
  - Gait disturbance [Unknown]
  - Device issue [Unknown]
  - Arthritis [Unknown]
  - Muscle strain [Unknown]
  - Back pain [Not Recovered/Not Resolved]
  - Arthralgia [Not Recovered/Not Resolved]
  - Nausea [Recovered/Resolved]
  - Vomiting [Recovered/Resolved]
  - Treatment failure [Unknown]
  - Musculoskeletal pain [Unknown]
  - Pain in extremity [Unknown]
